FAERS Safety Report 4451347-4 (Version None)
Quarter: 2004Q3

REPORT INFORMATION
  Report Type: 
  Country: None (occurrence: None)
  Receive Date: 20040916
  Receipt Date: 20040909
  Transmission Date: 20050211
  Serious: Yes (Other)
  Sender: FDA-Public Use
  Company Number: AU-BRISTOL-MYERS SQUIBB COMPANY-12697926

PATIENT
  Sex: Female

DRUGS (1)
  1. MONOPRIL [Suspect]
     Indication: HYPERTENSION
     Route: 048

REACTIONS (2)
  - BLINDNESS [None]
  - RETINAL HAEMORRHAGE [None]
